FAERS Safety Report 13939354 (Version 1)
Quarter: 2017Q3

REPORT INFORMATION
  Report Type: Report from Study
  Country: CA (occurrence: CA)
  Receive Date: 20170906
  Receipt Date: 20170906
  Transmission Date: 20171127
  Serious: Yes (Hospitalization)
  Sender: FDA-Public Use
  Company Number: CA-ROCHE-1986500

PATIENT
  Sex: Female

DRUGS (14)
  1. VAGIFEM [Concomitant]
     Active Substance: ESTRADIOL
  2. LEUCOVORIN. [Concomitant]
     Active Substance: LEUCOVORIN
  3. AVENTYL [Concomitant]
     Active Substance: NORTRIPTYLINE HYDROCHLORIDE
  4. APO-OMEPRAZOLE [Concomitant]
     Active Substance: OMEPRAZOLE
  5. METHOTREXATE. [Concomitant]
     Active Substance: METHOTREXATE
  6. ACTEMRA [Suspect]
     Active Substance: TOCILIZUMAB
     Indication: RHEUMATOID ARTHRITIS
     Route: 058
     Dates: start: 20170719, end: 20170809
  7. NORTRIPTYLINE [Concomitant]
     Active Substance: NORTRIPTYLINE
  8. FENTANYL. [Concomitant]
     Active Substance: FENTANYL
  9. APO-MOMETASONE [Concomitant]
     Active Substance: MOMETASONE FUROATE
     Route: 065
  10. DIAZEPAM. [Concomitant]
     Active Substance: DIAZEPAM
     Route: 065
  11. TRAZODONE [Concomitant]
     Active Substance: TRAZODONE HYDROCHLORIDE
  12. LYRICA [Concomitant]
     Active Substance: PREGABALIN
  13. WARFARIN [Concomitant]
     Active Substance: WARFARIN
  14. VENLAFAXINE [Concomitant]
     Active Substance: VENLAFAXINE HYDROCHLORIDE

REACTIONS (4)
  - Stomatitis [Unknown]
  - Swelling face [Unknown]
  - Nausea [Recovered/Resolved]
  - Tooth abscess [Unknown]
